FAERS Safety Report 4497047-6 (Version None)
Quarter: 2004Q4

REPORT INFORMATION
  Report Type: 
  Country: None (occurrence: None)
  Receive Date: 20041108
  Receipt Date: 20040527
  Transmission Date: 20050328
  Serious: Yes (Hospitalization, Other)
  Sender: FDA-Public Use
  Company Number: US_0405103317

PATIENT
  Sex: Female

DRUGS (1)
  1. PROZAC [Suspect]
     Dates: start: 20030701

REACTIONS (1)
  - SUICIDE ATTEMPT [None]
